FAERS Safety Report 5149643-0 (Version None)
Quarter: 2006Q4

REPORT INFORMATION
  Report Type: 
  Country: None (occurrence: None)
  Receive Date: 20061113
  Receipt Date: 20060703
  Transmission Date: 20070319
  Serious: No
  Sender: FDA-Public Use
  Company Number: US-GLAXOSMITHKLINE-A0610995A

PATIENT
  Age: 35 Year
  Sex: Female
  Weight: 90.9 kg

DRUGS (3)
  1. COREG [Suspect]
     Indication: DRUG USE FOR UNKNOWN INDICATION
     Dosage: 3.125MG TWICE PER DAY
     Route: 048
     Dates: start: 20040101
  2. ALTACE [Concomitant]
  3. PRILOSEC [Concomitant]

REACTIONS (1)
  - ARTHRALGIA [None]
